FAERS Safety Report 8424075-8 (Version None)
Quarter: 2012Q2

REPORT INFORMATION
  Report Type: 
  Country: None (occurrence: None)
  Receive Date: 20120608
  Receipt Date: 20110503
  Transmission Date: 20120825
  Serious: No
  Sender: FDA-Public Use
  Company Number: US-ASTRAZENECA-2011SE25520

PATIENT
  Age: 80 Year
  Sex: Female
  Weight: 68.5 kg

DRUGS (13)
  1. RESTASIS [Concomitant]
  2. LEVOTHYROXINE SODIUM [Concomitant]
  3. ASPIRIN [Concomitant]
  4. ALENDRONATE SODIUM [Concomitant]
  5. PROVENTIL [Concomitant]
  6. FLUTICASONE FUROATE [Concomitant]
  7. FISH OIL [Concomitant]
  8. NIFEDIPINE [Concomitant]
  9. AVAPRO [Concomitant]
  10. PULMICORT FLEXHALER [Suspect]
     Indication: ASTHMA
     Route: 055
     Dates: start: 20110301
  11. METOPROLOL [Concomitant]
  12. MULTI-VITAMIN [Concomitant]
  13. XALATAN [Concomitant]

REACTIONS (2)
  - PNEUMONIA [None]
  - ORAL CANDIDIASIS [None]
